FAERS Safety Report 25647797 (Version 1)
Quarter: 2025Q3

REPORT INFORMATION
  Report Type: Report from Study
  Country: PK (occurrence: PK)
  Receive Date: 20250806
  Receipt Date: 20250806
  Transmission Date: 20251020
  Serious: Yes (Death)
  Sender: ROCHE
  Company Number: PK-ROCHE-10000353156

PATIENT
  Age: 52 Year
  Sex: Female

DRUGS (2)
  1. PERJETA [Suspect]
     Active Substance: PERTUZUMAB
     Indication: Breast cancer metastatic
     Dosage: TOTAL CYCLES INFUSED 24
     Route: 042
     Dates: start: 20231023, end: 20250702
  2. HERCEPTIN [Suspect]
     Active Substance: TRASTUZUMAB
     Indication: Breast cancer metastatic
     Dosage: TOTAL CYCLES INFUSED 24
     Route: 058
     Dates: start: 20220516, end: 20250702

REACTIONS (2)
  - Asthenia [Fatal]
  - Dyspepsia [Fatal]

NARRATIVE: CASE EVENT DATE: 20250729
